FAERS Safety Report 21137558 (Version 2)
Quarter: 2022Q4

REPORT INFORMATION
  Report Type: Spontaneous
  Country: ZA (occurrence: ZA)
  Receive Date: 20220727
  Receipt Date: 20221006
  Transmission Date: 20230113
  Serious: Yes (Hospitalization)
  Sender: FDA-Public Use
  Company Number: ZA-PFIZER INC-PV202200005738

PATIENT
  Age: 51 Year
  Sex: Female
  Weight: 56 kg

DRUGS (3)
  1. XELJANZ [Suspect]
     Active Substance: TOFACITINIB CITRATE
     Dosage: 10 G, 2X/DAY
     Dates: start: 20220116, end: 20220705
  2. XELJANZ [Suspect]
     Active Substance: TOFACITINIB CITRATE
     Dosage: 5 MG, 2X/DAY
     Dates: start: 20220705
  3. XELJANZ [Suspect]
     Active Substance: TOFACITINIB CITRATE
     Dosage: 10 MG, 2X/DAY
     Dates: start: 2022

REACTIONS (7)
  - Frequent bowel movements [Unknown]
  - Abdominal pain [Unknown]
  - Faecal calprotectin increased [Unknown]
  - C-reactive protein increased [Unknown]
  - Off label use [Unknown]
  - Back pain [Unknown]
  - Mucolipidosis [Unknown]

NARRATIVE: CASE EVENT DATE: 20220715
